FAERS Safety Report 23442650 (Version 1)
Quarter: 2024Q1

REPORT INFORMATION
  Report Type: Spontaneous
  Country: BG (occurrence: BG)
  Receive Date: 20240125
  Receipt Date: 20240125
  Transmission Date: 20240410
  Serious: Yes (Hospitalization)
  Sender: FDA-Public Use
  Company Number: BG-TEVA-VS-3148811

PATIENT
  Age: 16 Year
  Sex: Female

DRUGS (4)
  1. OSELTAMIVIR PHOSPHATE [Suspect]
     Active Substance: OSELTAMIVIR PHOSPHATE
     Indication: Product used for unknown indication
     Dosage: 2X75 MG PD
     Route: 048
     Dates: start: 20240114, end: 20240114
  2. AVIRON RAPID [Concomitant]
  3. ACETAMINOPHEN [Concomitant]
     Active Substance: ACETAMINOPHEN
  4. VITAMIN C [Concomitant]
     Active Substance: ASCORBIC ACID

REACTIONS (4)
  - Oedema [Recovering/Resolving]
  - Headache [Recovering/Resolving]
  - Sense of oppression [Recovering/Resolving]
  - Rash [Recovering/Resolving]
